FAERS Safety Report 23577086 (Version 7)
Quarter: 2024Q3

REPORT INFORMATION
  Report Type: Spontaneous
  Country: US (occurrence: US)
  Receive Date: 20240228
  Receipt Date: 20240716
  Transmission Date: 20241016
  Serious: Yes (Hospitalization, Other)
  Sender: TRAVERE THERAPEUTICS
  Company Number: US-TRAVERE-2024TVT00190

PATIENT
  Age: 61 Year
  Sex: Female
  Weight: 128.37 kg

DRUGS (19)
  1. FILSPARI [Suspect]
     Active Substance: SPARSENTAN
     Indication: IgA nephropathy
     Route: 048
     Dates: start: 20240214
  2. FILSPARI [Suspect]
     Active Substance: SPARSENTAN
     Indication: Haematuria
     Route: 048
  3. CLONIDINE HYDROCHLORIDE [Concomitant]
     Active Substance: CLONIDINE HYDROCHLORIDE
  4. VITAMIN D3 [Concomitant]
     Active Substance: CHOLECALCIFEROL
  5. ALBUTEROL SULFATE [Concomitant]
     Active Substance: ALBUTEROL SULFATE
  6. NOVOLOG [Concomitant]
     Active Substance: INSULIN ASPART
  7. TRESIBA FLEXTOUCH U-200 [Concomitant]
  8. IMITREX [Concomitant]
     Active Substance: SUMATRIPTAN SUCCINATE
  9. SINGULAIR [Concomitant]
     Active Substance: MONTELUKAST SODIUM
  10. GABAPENTIN [Concomitant]
     Active Substance: GABAPENTIN
  11. LOPID [Concomitant]
     Active Substance: GEMFIBROZIL
  12. LOSARTAN POTASSIUM [Concomitant]
     Active Substance: LOSARTAN POTASSIUM
  13. EZETIMIBE [Concomitant]
     Active Substance: EZETIMIBE
  14. FISH OIL [Concomitant]
     Active Substance: FISH OIL
  15. GLYXAMB [Concomitant]
  16. AMLODIPINE AND ATORVASTATIN [Concomitant]
     Active Substance: AMLODIPINE BESYLATE\ATORVASTATIN CALCIUM
  17. HYDROCHLOROTHIAZIDE\SPIRONOLACTONE [Concomitant]
     Active Substance: HYDROCHLOROTHIAZIDE\SPIRONOLACTONE
  18. TARPEYO [Concomitant]
     Active Substance: BUDESONIDE
  19. AMLODIPINE BESYLATE [Concomitant]
     Active Substance: AMLODIPINE BESYLATE

REACTIONS (14)
  - Respiratory syncytial virus infection [Unknown]
  - Urinary tract infection [Not Recovered/Not Resolved]
  - Diabetic ketoacidosis [Unknown]
  - Pneumonia [Unknown]
  - Kidney infection [Unknown]
  - Sepsis [Unknown]
  - Hypotension [Unknown]
  - Contraindicated product prescribed [Unknown]
  - Sluggishness [Unknown]
  - Fatigue [Unknown]
  - Asthenia [Unknown]
  - Hypertension [Unknown]
  - Dizziness [Unknown]
  - Feeling abnormal [Unknown]

NARRATIVE: CASE EVENT DATE: 20240423
